FAERS Safety Report 7751810-4 (Version None)
Quarter: 2011Q3

REPORT INFORMATION
  Report Type: 
  Country: None (occurrence: None)
  Receive Date: 20110914
  Receipt Date: 20110914
  Transmission Date: 20111222
  Serious: Yes (Other)
  Sender: FDA-Public Use
  Company Number: None

PATIENT
  Age: 46 Year
  Sex: Male
  Weight: 74.4806 kg

DRUGS (5)
  1. SERTRALINE HYDROCHLORIDE [Concomitant]
  2. ALBUTEROL INHALER [Concomitant]
  3. ATRIPLA [Concomitant]
  4. RISPERIDONE [Suspect]
     Indication: DEPRESSION
     Dosage: 2 MG PO QD
     Route: 048
     Dates: start: 20110601, end: 20110801
  5. TRAZODINE [Concomitant]

REACTIONS (1)
  - HEPATITIS [None]
